FAERS Safety Report 9715640 (Version 2)
Quarter: 2014Q4

REPORT INFORMATION
  Report Type: Spontaneous
  Country: KR (occurrence: KR)
  Receive Date: 20131127
  Receipt Date: 20141030
  Transmission Date: 20150529
  Serious: Yes (Hospitalization, Other)
  Sender: FDA-Public Use
  Company Number: KR-JNJFOC-20131110413

PATIENT
  Age: 44 Year
  Sex: Female

DRUGS (3)
  1. VITAMIN B12 [Concomitant]
     Active Substance: CYANOCOBALAMIN
     Indication: PRODUCT USED FOR UNKNOWN INDICATION
     Route: 065
  2. DURAGESIC [Suspect]
     Active Substance: FENTANYL
     Indication: BACK PAIN
     Route: 062
     Dates: start: 20110706
  3. DURAGESIC [Suspect]
     Active Substance: FENTANYL
     Indication: PAIN
     Route: 062
     Dates: start: 20110706

REACTIONS (18)
  - Paralysis [Unknown]
  - Micturition disorder [Unknown]
  - Rhabdomyolysis [Recovered/Resolved]
  - Toxicity to various agents [Unknown]
  - Pneumonia aspiration [Recovered/Resolved]
  - Intercepted medication error [Unknown]
  - Disorientation [Unknown]
  - Hypoventilation [Recovered/Resolved with Sequelae]
  - Loss of consciousness [Recovered/Resolved]
  - Brain scan abnormal [Unknown]
  - Communication disorder [Unknown]
  - Vomiting [Unknown]
  - Change of bowel habit [Unknown]
  - Acute kidney injury [Recovered/Resolved]
  - Brain injury [Unknown]
  - Cerebral hypoperfusion [Unknown]
  - Encephalomalacia [Unknown]
  - Dizziness [Unknown]

NARRATIVE: CASE EVENT DATE: 2011
